FAERS Safety Report 7440213-8 (Version None)
Quarter: 2011Q2

REPORT INFORMATION
  Report Type: 
  Country: None (occurrence: None)
  Receive Date: 20110427
  Receipt Date: 20110419
  Transmission Date: 20111010
  Serious: Yes (Other)
  Sender: FDA-Public Use
  Company Number: US-BAXTER-2011BH012575

PATIENT

DRUGS (12)
  1. ONDANSETRON [Concomitant]
     Indication: PROPHYLAXIS
     Route: 065
  2. ETHIODOL [Suspect]
     Indication: BILE DUCT CANCER
     Route: 042
  3. DEXAMETHASONE [Concomitant]
     Indication: PRODUCT USED FOR UNKNOWN INDICATION
     Route: 065
  4. CEFAZOLIN [Concomitant]
     Indication: PRODUCT USED FOR UNKNOWN INDICATION
     Route: 065
  5. CISPLATIN [Suspect]
     Indication: BILE DUCT CANCER
     Route: 042
  6. FENTANYL [Concomitant]
     Indication: ANAESTHESIA
     Route: 042
  7. NORMAL SALINE [Concomitant]
     Indication: PRODUCT USED FOR UNKNOWN INDICATION
     Route: 065
  8. POLYVINYL ALCOHOL [Suspect]
     Indication: BILE DUCT CANCER
     Route: 042
  9. DOXORUBICIN [Suspect]
     Indication: BILE DUCT CANCER
     Route: 042
  10. LIDOCAINE [Concomitant]
     Indication: LOCAL ANAESTHESIA
     Route: 065
  11. MITOMYCIN [Suspect]
     Indication: BILE DUCT CANCER
     Route: 042
  12. MIDAZOLAM [Concomitant]
     Indication: ANAESTHESIA
     Route: 042

REACTIONS (1)
  - POST EMBOLISATION SYNDROME [None]
